FAERS Safety Report 7269462-9 (Version None)
Quarter: 2011Q1

REPORT INFORMATION
  Report Type: 
  Country: None (occurrence: None)
  Receive Date: 20110125
  Receipt Date: 20110111
  Transmission Date: 20110831
  Serious: Yes (Other)
  Sender: FDA-Public Use
  Company Number: DSJ-2011-00658

PATIENT
  Age: 77 Year
  Sex: Female

DRUGS (4)
  1. FLUOXETINE [Concomitant]
  2. BENICAR HCT [Suspect]
     Indication: HYPERTENSION
     Dosage: 40/12.5 MG (1 IN 1 D),PER ORAL
     Route: 048
     Dates: start: 20070806
  3. PINDOLOL ((PINDOLOL) (PINDOLOL) [Concomitant]
  4. LANZOPRAZOLE (LANSOPRAZOLE) (LANSOPRAZOLE) [Concomitant]

REACTIONS (2)
  - WRIST FRACTURE [None]
  - FALL [None]
